FAERS Safety Report 7800768-8 (Version None)
Quarter: 2011Q4

REPORT INFORMATION
  Report Type: 
  Country: None (occurrence: None)
  Receive Date: 20111006
  Receipt Date: 20110927
  Transmission Date: 20120403
  Serious: Yes (Hospitalization)
  Sender: FDA-Public Use
  Company Number: US-BAXTER-2011BH030599

PATIENT
  Sex: Female

DRUGS (2)
  1. AMINO ACIDS NOS [Suspect]
     Indication: PARENTERAL NUTRITION
     Route: 065
  2. DEXTROSE [Suspect]
     Indication: PARENTERAL NUTRITION
     Route: 065

REACTIONS (3)
  - SKIN EXFOLIATION [None]
  - SKIN IRRITATION [None]
  - RASH [None]
